FAERS Safety Report 9225693 (Version 1)
Quarter: 2013Q2

REPORT INFORMATION
  Report Type: Report from Study
  Country: JP (occurrence: JP)
  Receive Date: 20130411
  Receipt Date: 20130411
  Transmission Date: 20140414
  Serious: Yes (Other)
  Sender: FDA-Public Use
  Company Number: JP-GLAXOSMITHKLINE-B0695741A

PATIENT
  Age: 45 Year
  Sex: Female
  Weight: 65 kg

DRUGS (14)
  1. TYKERB [Suspect]
     Indication: BREAST CANCER
     Route: 048
     Dates: start: 20101104, end: 20110303
  2. XELODA [Suspect]
     Indication: PRODUCT USED FOR UNKNOWN INDICATION
     Route: 048
     Dates: start: 20101104, end: 20101216
  3. XELODA [Suspect]
     Indication: PRODUCT USED FOR UNKNOWN INDICATION
     Route: 048
     Dates: start: 20110106, end: 20110303
  4. LEUPRORELIN ACETATE [Concomitant]
     Route: 058
     Dates: start: 20080821
  5. HYPEN [Concomitant]
     Indication: PAIN
     Route: 048
     Dates: start: 20100708, end: 20101021
  6. METHYCOBAL [Concomitant]
     Indication: NEUROPATHY PERIPHERAL
     Route: 048
     Dates: start: 20100909
  7. LYRICA [Concomitant]
     Indication: NEURALGIA
     Route: 048
     Dates: start: 20101028
  8. LOXOPROFEN [Concomitant]
     Indication: PAIN
     Route: 048
     Dates: start: 20101104
  9. OXINORM [Concomitant]
     Indication: PAIN
     Route: 048
     Dates: start: 20101104
  10. OXYCONTIN [Concomitant]
     Indication: PAIN
     Route: 048
     Dates: start: 20110120
  11. FUROSEMIDE [Concomitant]
     Indication: OEDEMA
     Route: 048
     Dates: start: 20110218
  12. ALDACTONE A [Concomitant]
     Indication: OEDEMA
     Route: 048
     Dates: start: 20110218
  13. PYDOXAL [Concomitant]
     Indication: PROPHYLAXIS
     Route: 048
     Dates: start: 20101104, end: 20110520
  14. HIRUDOID [Concomitant]
     Indication: PALMAR-PLANTAR ERYTHRODYSAESTHESIA SYNDROME
     Route: 061
     Dates: start: 20101104, end: 20110120

REACTIONS (7)
  - Cardiac failure [Not Recovered/Not Resolved]
  - Diarrhoea [Recovered/Resolved]
  - Stomatitis [Recovering/Resolving]
  - Glossitis [Recovered/Resolved]
  - Palmar-plantar erythrodysaesthesia syndrome [Recovered/Resolved]
  - Rash [Recovered/Resolved]
  - Paronychia [Recovered/Resolved]
